FAERS Safety Report 23710205 (Version 2)
Quarter: 2024Q2

REPORT INFORMATION
  Report Type: Spontaneous
  Country: US (occurrence: US)
  Receive Date: 20240405
  Receipt Date: 20240420
  Transmission Date: 20240715
  Serious: No
  Sender: FDA-Public Use
  Company Number: US-HALEON-USCH2024015677

PATIENT

DRUGS (1)
  1. ABREVA RAPID PAIN RELIEF [Suspect]
     Active Substance: GLYCERIN\LIDOCAINE HYDROCHLORIDE
     Indication: Product used for unknown indication

REACTIONS (1)
  - Drug ineffective [Unknown]
